FAERS Safety Report 7277894-8 (Version None)
Quarter: 2011Q1

REPORT INFORMATION
  Report Type: 
  Country: None (occurrence: None)
  Receive Date: 20110207
  Receipt Date: 20110124
  Transmission Date: 20110831
  Serious: Yes (Hospitalization, Other)
  Sender: FDA-Public Use
  Company Number: US-CELGENEUS-163-20785-11012451

PATIENT
  Sex: Female
  Weight: 44.492 kg

DRUGS (31)
  1. NORCO [Concomitant]
     Dosage: 5-325MG
     Route: 048
  2. PRILOSEC [Concomitant]
     Route: 048
  3. VITAMIN B [Concomitant]
     Route: 065
  4. LEVOTHYROXINE SODIUM [Concomitant]
     Route: 048
     Dates: start: 20100915
  5. MILK OF MAGNESIUM [Concomitant]
     Indication: CONSTIPATION
     Route: 048
  6. COLACE [Concomitant]
     Route: 048
  7. THALOMID [Suspect]
     Indication: MYELOPROLIFERATIVE DISORDER
     Dosage: UNKNOWN
     Route: 048
     Dates: start: 20100709
  8. ASPIRIN [Concomitant]
     Route: 065
  9. BIOTIN WITH B VITAMINS [Concomitant]
     Route: 065
  10. CYPROHEPTADINE HCL [Concomitant]
     Indication: PRURITUS
     Route: 065
  11. FIBER [Concomitant]
     Route: 048
  12. IBUPROFEN [Concomitant]
     Route: 065
  13. MULTI-VITAMINS [Concomitant]
     Route: 048
  14. ROBITUSSIN DM [Concomitant]
     Dosage: 100-10MG/5ML
     Route: 048
  15. FISH OIL [Concomitant]
     Route: 048
  16. THALOMID [Suspect]
     Route: 048
     Dates: start: 20100805, end: 20101020
  17. ASPIRIN [Concomitant]
     Route: 048
  18. DULCOLAX [Concomitant]
     Route: 054
  19. ZOLOFT [Concomitant]
     Route: 048
  20. VITAMIN D [Concomitant]
     Dosage: 1000 UNIT
     Route: 048
  21. CITRACAL+D [Concomitant]
     Dosage: 315/250MG
     Route: 048
  22. CITRACAL+D [Concomitant]
     Route: 048
  23. PREDNISONE [Concomitant]
     Route: 048
     Dates: start: 20100709
  24. IPRATROPIUM BROMIDE AND ALBUTEROL SULFATE [Concomitant]
     Dosage: 0.5-2.5MG/3ML
     Route: 055
  25. CARVEDILOL [Concomitant]
     Route: 048
  26. ZOLEDRONIC ACID [Concomitant]
     Indication: OSTEOARTHRITIS
     Route: 065
  27. PROCHLORPERAZINE [Concomitant]
     Indication: NAUSEA
     Route: 048
  28. FLUIDS [Concomitant]
     Route: 051
  29. ACETAMINOPHEN [Concomitant]
     Route: 048
  30. LEVOTHYROXINE SODIUM [Concomitant]
     Indication: HYPOTHYROIDISM
     Route: 048
  31. PREDNISONE [Concomitant]
     Route: 048

REACTIONS (13)
  - ELECTROLYTE IMBALANCE [None]
  - CANDIDIASIS [None]
  - DEHYDRATION [None]
  - COUGH [None]
  - PNEUMONIA [None]
  - ASTHENIA [None]
  - DECREASED APPETITE [None]
  - NAUSEA [None]
  - DYSPNOEA [None]
  - ABDOMINAL DISTENSION [None]
  - VOMITING [None]
  - FAILURE TO THRIVE [None]
  - RENAL FAILURE [None]
